FAERS Safety Report 5655013-9 (Version None)
Quarter: 2008Q1

REPORT INFORMATION
  Report Type: 
  Country: None (occurrence: None)
  Receive Date: 20080307
  Receipt Date: 20071022
  Transmission Date: 20080703
  Serious: No
  Sender: FDA-Public Use
  Company Number: A0688968A

PATIENT
  Age: 75 Year
  Sex: Male

DRUGS (6)
  1. REQUIP [Suspect]
     Indication: RESTLESS LEGS SYNDROME
     Route: 048
     Dates: start: 20070726, end: 20070731
  2. CARBIDOPA AND LEVODOPA [Concomitant]
     Route: 048
  3. UNKNOWN PROTEIN SUPPLEMENT [Concomitant]
     Route: 048
  4. NEXIUM [Concomitant]
  5. SELENIUM [Concomitant]
  6. VITAMIN E [Concomitant]

REACTIONS (5)
  - ABNORMAL BEHAVIOUR [None]
  - ANOREXIA [None]
  - DRUG INEFFECTIVE [None]
  - FEELING ABNORMAL [None]
  - INSOMNIA [None]
